FAERS Safety Report 5217750-X (Version None)
Quarter: 2007Q1

REPORT INFORMATION
  Report Type: 
  Country: None (occurrence: None)
  Receive Date: 20061130
  Receipt Date: 20060814
  Transmission Date: 20070707
  Serious: Yes (Hospitalization)
  Sender: FDA-Public Use
  Company Number: US200608004458

PATIENT
  Age: 42 Year
  Sex: Female
  Weight: 90.7 kg

DRUGS (9)
  1. ZYPREXA [Suspect]
     Indication: SCHIZOPHRENIA
     Dosage: 10 MG; 20 MG
  2. QUETIAPINE FUMARATE [Concomitant]
  3. RISPERIDONE [Concomitant]
  4. HALOPERIDOL [Concomitant]
  5. CITALOPRAM HYDROBROMIDE [Concomitant]
  6. DOXEPIN HCL [Concomitant]
  7. FLUOXETINE /N/A/(FLUOXETINE) [Concomitant]
  8. VENLAFAXINE HCL [Concomitant]
  9. INSULIN (INSULIN) [Concomitant]

REACTIONS (4)
  - DIABETES MELLITUS [None]
  - OBESITY [None]
  - PANCREATITIS [None]
  - VISION BLURRED [None]
